FAERS Safety Report 9957842 (Version 2)
Quarter: 2014Q1

REPORT INFORMATION
  Report Type: Report from Study
  Country: US (occurrence: US)
  Receive Date: 20140304
  Receipt Date: 20140304
  Transmission Date: 20141002
  Serious: No
  Sender: FDA-Public Use
  Company Number: US-ABBVIE-13P-163-1051677-00

PATIENT
  Age: 41 Year
  Sex: Female

DRUGS (7)
  1. HUMIRA [Suspect]
     Indication: CROHN^S DISEASE
     Dates: start: 20130215, end: 20130215
  2. HUMIRA [Suspect]
  3. LISINOPRIL/HYDROCHLOROTHIAZIDE [Concomitant]
     Indication: PRODUCT USED FOR UNKNOWN INDICATION
     Dosage: 10MG/12.5MG DAILY
  4. CARTIA [Concomitant]
     Indication: HYPERTENSION
  5. ASACOL [Concomitant]
     Indication: CROHN^S DISEASE
  6. CELEXA [Concomitant]
     Indication: DEPRESSION
     Dosage: AT NIGHT
  7. DIPHENHYDRAMINE [Concomitant]
     Indication: INSOMNIA
     Dosage: AT NIGHT

REACTIONS (5)
  - Amenorrhoea [Unknown]
  - Injection site haemorrhage [Not Recovered/Not Resolved]
  - Injection site pain [Not Recovered/Not Resolved]
  - Hypoaesthesia [Recovered/Resolved]
  - Injection site bruising [Not Recovered/Not Resolved]
